FAERS Safety Report 4736731-3 (Version None)
Quarter: 2005Q3

REPORT INFORMATION
  Report Type: 
  Country: None (occurrence: None)
  Receive Date: 20050803
  Receipt Date: 20050726
  Transmission Date: 20060218
  Serious: Yes (Death, Hospitalization)
  Sender: FDA-Public Use
  Company Number: 163-20785-05020218

PATIENT
  Age: 73 Year
  Sex: Male

DRUGS (24)
  1. THALOMID [Suspect]
     Indication: MULTIPLE MYELOMA
     Dosage: 100 MG, QHS, ORAL
     Route: 048
     Dates: start: 20031229, end: 20050101
  2. THALOMID [Suspect]
     Indication: MULTIPLE MYELOMA
     Dosage: 100 MG, QHS, ORAL
     Route: 048
     Dates: start: 20050101
  3. COLACE (DOCUSATE SODIUM) [Concomitant]
  4. ZOMETA [Concomitant]
  5. FOLIC ACID [Concomitant]
  6. CALCIUM GLUCONATE [Concomitant]
  7. LOVASTATIN [Concomitant]
  8. NEPHRO0VITE (NEPHRO-VITE EX) [Concomitant]
  9. ECOTRIN (ACETYLSALICYLIC ACID) [Concomitant]
  10. ISORDIL [Concomitant]
  11. TRAZODONE [Concomitant]
  12. IMDUR [Concomitant]
  13. MEGACE [Concomitant]
  14. PROTONIX [Concomitant]
  15. VICODIN [Concomitant]
  16. AMBIEN [Concomitant]
  17. DULCOLAX [Concomitant]
  18. ATROVENT [Concomitant]
  19. ALBUTEROL [Concomitant]
  20. REGLAN [Concomitant]
  21. FERROUS SULFATE TAB [Concomitant]
  22. PAMIDRONATE DISODIUM [Concomitant]
  23. TIMOPTIC [Concomitant]
  24. COREG [Concomitant]

REACTIONS (21)
  - ANAEMIA [None]
  - ARTHRALGIA [None]
  - BACTERIAL INFECTION [None]
  - BLOOD CULTURE POSITIVE [None]
  - CONSTIPATION [None]
  - DEEP VEIN THROMBOSIS [None]
  - FALL [None]
  - FATIGUE [None]
  - HEAD INJURY [None]
  - HEADACHE [None]
  - INJURY [None]
  - LOBAR PNEUMONIA [None]
  - NAUSEA [None]
  - NECK PAIN [None]
  - PAIN [None]
  - REFUSAL OF TREATMENT BY RELATIVE [None]
  - RENAL FAILURE ACUTE [None]
  - RHYTHM IDIOVENTRICULAR [None]
  - SUBARACHNOID HAEMORRHAGE [None]
  - UPPER GASTROINTESTINAL HAEMORRHAGE [None]
  - VISION BLURRED [None]
